FAERS Safety Report 10789580 (Version 1)
Quarter: 2015Q1

REPORT INFORMATION
  Report Type: Spontaneous
  Country: DE (occurrence: CN)
  Receive Date: 20150212
  Receipt Date: 20150212
  Transmission Date: 20150721
  Serious: Yes (Death, Other)
  Sender: FDA-Public Use
  Company Number: DE-ACTELION-A-US2015-112754

PATIENT
  Age: 15 Year
  Sex: Male

DRUGS (1)
  1. VENTAVIS [Suspect]
     Active Substance: ILOPROST
     Indication: PRODUCT USED FOR UNKNOWN INDICATION
     Dosage: UNK
     Route: 055
     Dates: start: 20141211, end: 20141211

REACTIONS (11)
  - Cardiac failure [Fatal]
  - Off label use [Unknown]
  - Hyperhidrosis [Unknown]
  - Cyanosis [Unknown]
  - Heart rate decreased [Unknown]
  - Dyspnoea [Unknown]
  - Mouth haemorrhage [Unknown]
  - Epistaxis [Unknown]
  - Respiratory failure [Fatal]
  - Heart rate increased [Unknown]
  - Incorrect route of drug administration [Unknown]

NARRATIVE: CASE EVENT DATE: 20141211
